FAERS Safety Report 19500100 (Version 1)
Quarter: 2021Q3

REPORT INFORMATION
  Report Type: Spontaneous
  Country: US (occurrence: US)
  Receive Date: 20210706
  Receipt Date: 20210706
  Transmission Date: 20211014
  Serious: Yes (Other)
  Sender: FDA-Public Use
  Company Number: US-TEVA-2021-US-1928874

PATIENT
  Age: 8 Month
  Sex: Female

DRUGS (7)
  1. VINCRISTINE [Suspect]
     Active Substance: VINCRISTINE
     Dosage: WEEK 3 AND WEEK 5, DAY 1
     Route: 042
  2. ETOPOSIDE. [Suspect]
     Active Substance: ETOPOSIDE
     Indication: MEDULLOBLASTOMA
     Dosage: 150 MG/M2 DAILY; WEEK 1 AND WEEK 7, DAY 1?3
     Route: 042
  3. METHOTREXATE. [Suspect]
     Active Substance: METHOTREXATE
     Dosage: 5 G/M2; WEEK 3 AND WEEK 5, 24H INFUSION
     Route: 041
  4. VINCRISTINE [Suspect]
     Active Substance: VINCRISTINE
     Indication: MEDULLOBLASTOMA
     Dosage: WEEK 1 AND WEEK 7, DAY 1
     Route: 042
  5. CARBOPLATIN. [Suspect]
     Active Substance: CARBOPLATIN
     Indication: MEDULLOBLASTOMA
     Dosage: 200 MG/M2 DAILY; WEEK 1 AND WEEK 7, DAY 1?3
     Route: 042
  6. METHOTREXATE. [Suspect]
     Active Substance: METHOTREXATE
     Indication: MEDULLOBLASTOMA
     Dosage: 8 MILLIGRAM DAILY; WEEK 1 AND WEEK 7, DAY 1?4
     Route: 037
  7. CYCLOPHOSPHAMIDE. [Suspect]
     Active Substance: CYCLOPHOSPHAMIDE
     Indication: MEDULLOBLASTOMA
     Dosage: 800 MG/M2 DAILY; WEEK 1 AND WEEK 7, DAY 1?3
     Route: 042

REACTIONS (2)
  - Neutropenia [Unknown]
  - Pyrexia [Recovered/Resolved]
